FAERS Safety Report 22242828 (Version 3)
Quarter: 2023Q2

REPORT INFORMATION
  Report Type: Spontaneous
  Country: US (occurrence: US)
  Receive Date: 20230424
  Receipt Date: 20230516
  Transmission Date: 20230721
  Serious: Yes (Hospitalization, Other)
  Sender: FDA-Public Use
  Company Number: US-SA-SAC20230421000405

PATIENT
  Age: 39 Year
  Sex: Male

DRUGS (1)
  1. DUPIXENT [Suspect]
     Active Substance: DUPILUMAB
     Indication: Nasal polyps
     Dosage: UNK
     Route: 058
     Dates: start: 202001

REACTIONS (4)
  - Deep vein thrombosis [Recovering/Resolving]
  - Thrombosis [Recovering/Resolving]
  - Pulmonary embolism [Recovering/Resolving]
  - Ankle fracture [Not Recovered/Not Resolved]
